FAERS Safety Report 12827522 (Version 1)
Quarter: 2016Q4

REPORT INFORMATION
  Report Type: Spontaneous
  Country: US (occurrence: US)
  Receive Date: 20161006
  Receipt Date: 20161006
  Transmission Date: 20170207
  Serious: No
  Sender: FDA-Public Use
  Company Number: US-INDIVIOR LIMITED-INDV-091435-2016

PATIENT
  Age: 30 Year
  Sex: Female

DRUGS (2)
  1. SUBOXONE [Suspect]
     Active Substance: BUPRENORPHINE HYDROCHLORIDE\NALOXONE HYDROCHLORIDE
     Indication: DRUG DEPENDENCE
     Dosage: 12 MG, QD
     Route: 060
     Dates: start: 2012
  2. SUBOXONE [Suspect]
     Active Substance: BUPRENORPHINE HYDROCHLORIDE\NALOXONE HYDROCHLORIDE
     Dosage: WEAN OFF AND TAKEN MORE THAN PRESCRIBED
     Route: 060

REACTIONS (8)
  - Intentional product use issue [Recovered/Resolved]
  - Decreased interest [Not Recovered/Not Resolved]
  - Asthenia [Not Recovered/Not Resolved]
  - Intentional underdose [Recovered/Resolved]
  - Therapy cessation [Recovered/Resolved]
  - Constipation [Not Recovered/Not Resolved]
  - Substance abuse [Recovered/Resolved]
  - Amnesia [Not Recovered/Not Resolved]
